FAERS Safety Report 10137454 (Version 2)
Quarter: 2014Q2

REPORT INFORMATION
  Report Type: Spontaneous
  Country: GB (occurrence: None)
  Receive Date: 20140425
  Receipt Date: 20140429
  Transmission Date: 20141212
  Serious: Yes (Life-Threatening, Hospitalization, Other)
  Sender: FDA-Public Use
  Company Number: AUR-APL-2014-04779

PATIENT
  Age: 32 Year
  Sex: Male

DRUGS (3)
  1. SERTRALINE [Suspect]
     Indication: DEPRESSION
     Route: 048
     Dates: start: 201310
  2. CLOZARIL [Suspect]
     Indication: SCHIZOPHRENIA
     Route: 048
     Dates: start: 20040624
  3. METFORMIN [Concomitant]

REACTIONS (4)
  - Type 2 diabetes mellitus [None]
  - Haemoglobin decreased [None]
  - Obsessive-compulsive disorder [None]
  - Gastrointestinal haemorrhage [None]
